FAERS Safety Report 9104505 (Version 2)
Quarter: 2013Q2

REPORT INFORMATION
  Report Type: Report from Study
  Country: JP (occurrence: JP)
  Receive Date: 20130220
  Receipt Date: 20130425
  Transmission Date: 20140414
  Serious: Yes (Other)
  Sender: FDA-Public Use
  Company Number: JP-ROCHE-1192173

PATIENT
  Age: 70 Year
  Sex: Male
  Weight: 67 kg

DRUGS (12)
  1. ACTIVACIN [Suspect]
     Indication: THROMBOTIC CEREBRAL INFARCTION
     Route: 040
     Dates: start: 20100918, end: 20100918
  2. RADICUT [Suspect]
     Indication: THROMBOTIC CEREBRAL INFARCTION
     Route: 041
     Dates: start: 20100918, end: 20100918
  3. NOVASTAN [Concomitant]
     Dosage: DRUG NAME REPORTED AS: NOVASTAN HI (ARGATROBAN HYDRATE)
     Route: 065
     Dates: start: 20100919, end: 20100924
  4. CLOPIDOGREL [Concomitant]
     Dosage: DRUG NAME: CLOPIDOGREL SULFATE
     Route: 048
     Dates: start: 20100921
  5. OMEPRAL [Concomitant]
     Route: 065
     Dates: start: 20100918, end: 20100924
  6. SOLULACT [Concomitant]
     Route: 065
     Dates: start: 20100918, end: 20100925
  7. SOLDEM 1 [Concomitant]
     Route: 065
     Dates: start: 20100919, end: 20100928
  8. ADALAT CR [Concomitant]
     Route: 048
     Dates: start: 20100927
  9. PLAVIX [Concomitant]
     Route: 048
     Dates: start: 20100921
  10. COMELIAN [Concomitant]
     Route: 048
     Dates: start: 20100927
  11. RYTHMODAN [Concomitant]
     Route: 048
  12. ALLOZYM [Concomitant]
     Route: 048

REACTIONS (1)
  - Polyuria [Recovering/Resolving]
